FAERS Safety Report 18064853 (Version 1)
Quarter: 2020Q3

REPORT INFORMATION
  Report Type: Spontaneous
  Country: US (occurrence: US)
  Receive Date: 20200723
  Receipt Date: 20200723
  Transmission Date: 20201103
  Serious: Yes (Hospitalization)
  Sender: FDA-Public Use
  Company Number: None

PATIENT
  Sex: Female

DRUGS (5)
  1. MEDROXYPR [Concomitant]
  2. LAMOTRIGINE. [Concomitant]
     Active Substance: LAMOTRIGINE
  3. HYDROXYZ [Concomitant]
     Active Substance: HYDROXYZINE HYDROCHLORIDE
  4. QUETIAPINE. [Concomitant]
     Active Substance: QUETIAPINE
  5. REBIF [Suspect]
     Active Substance: INTERFERON BETA-1A
     Indication: MULTIPLE SCLEROSIS
     Dosage: ?          OTHER FREQUENCY:THREE TIMES PER WK;?
     Route: 058
     Dates: start: 20190605

REACTIONS (3)
  - Dizziness [None]
  - Bladder disorder [None]
  - Gastrointestinal disorder [None]
